FAERS Safety Report 23721772 (Version 3)
Quarter: 2024Q3

REPORT INFORMATION
  Report Type: Spontaneous
  Country: JP (occurrence: JP)
  Receive Date: 20240409
  Receipt Date: 20240702
  Transmission Date: 20241016
  Serious: Yes (Other)
  Sender: AMGEN
  Company Number: JP-AMGEN-JPNSP2024068727

PATIENT
  Age: 59 Year
  Sex: Male

DRUGS (2)
  1. OTEZLA [Suspect]
     Active Substance: APREMILAST
     Indication: Psoriasis
     Dosage: 60 MILLIGRAM
     Route: 048
     Dates: start: 20180221
  2. Tigason [Concomitant]
     Dosage: UNK
     Dates: start: 202107

REACTIONS (1)
  - Renal cancer metastatic [Recovered/Resolved]

NARRATIVE: CASE EVENT DATE: 20180101
